FAERS Safety Report 6189961-0 (Version None)
Quarter: 2009Q2

REPORT INFORMATION
  Report Type: 
  Country: None (occurrence: None)
  Receive Date: 20090514
  Receipt Date: 20090429
  Transmission Date: 20091009
  Serious: Yes (Other)
  Sender: FDA-Public Use
  Company Number: PHHY2009SE10024

PATIENT
  Sex: Male

DRUGS (3)
  1. RITALIN [Suspect]
     Dosage: 110 MG, QD
  2. RITALIN [Suspect]
     Dosage: 30 MG, QID
  3. LYRICA [Concomitant]
     Dosage: 300 MG +0+400MG

REACTIONS (3)
  - DRUG INEFFECTIVE [None]
  - GASTRIC BYPASS [None]
  - OBESITY [None]
